FAERS Safety Report 16795221 (Version 1)
Quarter: 2019Q3

REPORT INFORMATION
  Report Type: Spontaneous
  Country: AU (occurrence: AU)
  Receive Date: 20190911
  Receipt Date: 20190911
  Transmission Date: 20191005
  Serious: Yes (Death, Hospitalization)
  Sender: FDA-Public Use
  Company Number: AU-MYLANLABS-2019M1084802

PATIENT
  Age: 3 Decade
  Sex: Male

DRUGS (4)
  1. TRAMADOL. [Suspect]
     Active Substance: TRAMADOL
     Indication: POST-TRAUMATIC STRESS DISORDER
     Dosage: UNK
  2. OXYCODONE [Suspect]
     Active Substance: OXYCODONE
     Indication: POST-TRAUMATIC STRESS DISORDER
     Dosage: UNK
  3. OXYCODONE [Suspect]
     Active Substance: OXYCODONE
     Indication: ARTHRALGIA
  4. OXYCODONE [Suspect]
     Active Substance: OXYCODONE
     Indication: JOINT INJURY

REACTIONS (4)
  - Overdose [Fatal]
  - Intentional product misuse [Fatal]
  - Weight decreased [Fatal]
  - Drug dependence [Fatal]

NARRATIVE: CASE EVENT DATE: 201308
